FAERS Safety Report 25115665 (Version 4)
Quarter: 2025Q3

REPORT INFORMATION
  Report Type: Report from Study
  Country: CA (occurrence: CA)
  Receive Date: 20250325
  Receipt Date: 20250812
  Transmission Date: 20251021
  Serious: Yes (Hospitalization, Other)
  Sender: ABBVIE
  Company Number: CA-ABBVIE-6186572

PATIENT
  Age: 90 Year
  Sex: Male

DRUGS (3)
  1. LUPRON [Suspect]
     Active Substance: LEUPROLIDE ACETATE
     Indication: Prostate cancer
     Route: 030
  2. LUPRON [Suspect]
     Active Substance: LEUPROLIDE ACETATE
     Dosage: FORM STRENGTH:30 MG
     Route: 030
     Dates: start: 20140604, end: 20231004
  3. LUPRON [Suspect]
     Active Substance: LEUPROLIDE ACETATE
     Dosage: FORM STRENGTH:30 MG
     Route: 030
     Dates: start: 20240315

REACTIONS (5)
  - Cholecystectomy [Recovered/Resolved]
  - Weight decreased [Recovering/Resolving]
  - Decreased appetite [Recovering/Resolving]
  - Pallor [Recovering/Resolving]
  - Haemoglobin decreased [Recovering/Resolving]

NARRATIVE: CASE EVENT DATE: 20250301
